FAERS Safety Report 8760045 (Version 2)
Quarter: 2014Q3

REPORT INFORMATION
  Report Type: Spontaneous
  Country: US (occurrence: US)
  Receive Date: 20120829
  Receipt Date: 20140826
  Transmission Date: 20150326
  Serious: Yes (Hospitalization, Other)
  Sender: FDA-Public Use
  Company Number: US-009507513-2009SP029611

PATIENT
  Age: 22 Year
  Sex: Female
  Weight: 86.18 kg

DRUGS (7)
  1. NUVARING [Suspect]
     Active Substance: ETHINYL ESTRADIOL\ETONOGESTREL
     Indication: CONTRACEPTION
  2. ZOLOFT [Concomitant]
     Active Substance: SERTRALINE HYDROCHLORIDE
     Indication: DEPRESSION
     Dosage: 150 MG, BID
     Dates: start: 2001
  3. IRON (UNSPECIFIED) (+) VITAMINS (UNSPECIFIED) [Concomitant]
     Indication: PRODUCT USED FOR UNKNOWN INDICATION
  4. NUVARING [Suspect]
     Active Substance: ETHINYL ESTRADIOL\ETONOGESTREL
     Indication: MUSCLE SPASMS
     Dates: start: 2004, end: 2006
  5. CAFFEINE. [Concomitant]
     Active Substance: CAFFEINE
     Indication: PRODUCT USED FOR UNKNOWN INDICATION
     Dosage: TAKEN ONCE IN AWHILE, NO MORE THAN ONCE A MONTH
  6. PROVENTIL [Concomitant]
     Active Substance: ALBUTEROL
     Indication: ASTHMA
  7. NUVARING [Suspect]
     Active Substance: ETHINYL ESTRADIOL\ETONOGESTREL
     Indication: HAEMORRHAGE
     Dates: end: 200710

REACTIONS (18)
  - Pulmonary infarction [Recovered/Resolved]
  - Bronchitis bacterial [Unknown]
  - Dermatitis contact [Unknown]
  - Back pain [Unknown]
  - Bronchitis [Unknown]
  - Pulmonary embolism [Recovered/Resolved]
  - Road traffic accident [Unknown]
  - Pollakiuria [Unknown]
  - Skin abrasion [Unknown]
  - Spinal disorder [Unknown]
  - Folliculitis [Recovering/Resolving]
  - Epistaxis [Unknown]
  - Depression [Unknown]
  - Off label use [Unknown]
  - Candida infection [Unknown]
  - Pharyngitis [Unknown]
  - Tinea infection [Unknown]
  - Contusion [Unknown]

NARRATIVE: CASE EVENT DATE: 200401
